FAERS Safety Report 7823395-5 (Version None)
Quarter: 2011Q4

REPORT INFORMATION
  Report Type: 
  Country: None (occurrence: None)
  Receive Date: 20111014
  Receipt Date: 20111003
  Transmission Date: 20120403
  Serious: Yes (Life-Threatening, Hospitalization, Other)
  Sender: FDA-Public Use
  Company Number: AUR-APL-2011-05380

PATIENT
  Age: 40 Year
  Sex: Male

DRUGS (2)
  1. RISPERIDONE [Suspect]
     Indication: PSYCHOTIC DISORDER
     Dosage: (8 MG, 1 D, UNKNOWN; (7 MG, 1 D), UNKNOWN; (3 MG, 1D), UNKNOWN
  2. MIRTAZAPINE [Suspect]
     Indication: PRODUCT USED FOR UNKNOWN INDICATION
     Dosage: (45 MG, 1 D), UNKNOWN; (60 MG, 1 D) UNKNOWN

REACTIONS (8)
  - EMBOLISM VENOUS [None]
  - PAIN IN EXTREMITY [None]
  - DRUG INTERACTION [None]
  - TREATMENT FAILURE [None]
  - PARKINSONISM [None]
  - DEPRESSION [None]
  - RHABDOMYOLYSIS [None]
  - PULMONARY EMBOLISM [None]
